FAERS Safety Report 9970863 (Version 1)
Quarter: 2014Q1

REPORT INFORMATION
  Report Type: Report from Study
  Country: US (occurrence: US)
  Receive Date: 20140306
  Receipt Date: 20140306
  Transmission Date: 20141002
  Serious: Yes (Other)
  Sender: FDA-Public Use
  Company Number: US-NAPPMUNDI-USA-2014-0111714

PATIENT
  Sex: Female

DRUGS (1)
  1. OXY CR TAB [Suspect]
     Indication: PRODUCT USED FOR UNKNOWN INDICATION
     Dosage: 60 MG, TID
     Route: 048
     Dates: start: 201301

REACTIONS (5)
  - Tooth fracture [Unknown]
  - Tooth disorder [Unknown]
  - Malaise [Unknown]
  - Abdominal discomfort [Unknown]
  - Pain [Unknown]
